FAERS Safety Report 6245631-1 (Version None)
Quarter: 2009Q2

REPORT INFORMATION
  Report Type: 
  Country: None (occurrence: None)
  Receive Date: 20090625
  Receipt Date: 20080924
  Transmission Date: 20091009
  Serious: No
  Sender: FDA-Public Use
  Company Number: US-ASTRAZENECA-2008UW20112

PATIENT
  Age: 34 Year
  Sex: Female
  Weight: 73.9 kg

DRUGS (3)
  1. ZOLADEX [Suspect]
     Indication: MENORRHAGIA
     Route: 058
     Dates: start: 20080923
  2. ZOLADEX [Suspect]
     Indication: UTERINE LEIOMYOMA
     Route: 058
     Dates: start: 20080923
  3. IRON SUPPLEMENTS [Concomitant]

REACTIONS (1)
  - IMPLANT EXPULSION [None]
